FAERS Safety Report 10255938 (Version 1)
Quarter: 2014Q2

REPORT INFORMATION
  Report Type: Report from Study
  Country: US (occurrence: US)
  Receive Date: 20140624
  Receipt Date: 20140624
  Transmission Date: 20141212
  Serious: Yes (Hospitalization)
  Sender: FDA-Public Use
  Company Number: US-GLAXOSMITHKLINE-A1078128A

PATIENT
  Age: 51 Year
  Sex: Male
  Weight: 91.8 kg

DRUGS (23)
  1. REQUIP [Suspect]
     Indication: PRODUCT USED FOR UNKNOWN INDICATION
     Route: 065
  2. VIDAZA [Suspect]
     Indication: PROPHYLAXIS AGAINST GRAFT VERSUS HOST DISEASE
     Dosage: 30MGM2 PER DAY
     Route: 042
     Dates: start: 20140508
  3. FLUCONAZOLE [Concomitant]
     Indication: PROPHYLAXIS
     Dosage: 400MG TWICE PER DAY
     Route: 048
  4. DAPSON [Concomitant]
     Indication: ANTIFUNGAL PROPHYLAXIS
     Dosage: 400MG TWICE PER DAY
     Route: 048
  5. VALACYCLOVIR [Concomitant]
     Indication: PROPHYLAXIS
     Route: 048
  6. FLUTICASONE [Concomitant]
     Indication: RHINITIS
     Route: 025
  7. TAMSULOSIN [Concomitant]
     Indication: PRODUCT USED FOR UNKNOWN INDICATION
     Route: 048
  8. MAXALT [Concomitant]
     Indication: HEADACHE
  9. ESOMEPRAZOLE [Concomitant]
     Indication: GASTROOESOPHAGEAL REFLUX DISEASE
     Dosage: 20MG PER DAY
     Route: 048
  10. ESCITALOPRAM [Concomitant]
     Indication: MOOD ALTERED
     Dosage: 10MG PER DAY
     Route: 048
  11. VANCOMYCIN [Concomitant]
     Indication: CLOSTRIDIUM TEST POSITIVE
  12. XANAX [Concomitant]
     Indication: ANXIETY
  13. MORPHINE [Concomitant]
     Indication: PAIN
     Dosage: 30MG TWICE PER DAY
     Route: 048
  14. OXYCODONE [Concomitant]
     Indication: PAIN
     Route: 048
  15. PREDNISONE [Concomitant]
     Indication: GRAFT VERSUS HOST DISEASE
     Dosage: 10MG PER DAY
     Route: 048
  16. PROCHLORPERAZINE [Concomitant]
     Indication: NAUSEA
     Route: 048
  17. METHYLPHENIDATE [Concomitant]
  18. SKELAXIN [Concomitant]
     Indication: MUSCLE RELAXANT THERAPY
     Dosage: 2400MG THREE TIMES PER DAY
     Route: 048
  19. SIMETHICONE [Concomitant]
     Indication: FLATULENCE
     Dosage: 320MG FOUR TIMES PER DAY
     Route: 048
  20. ENOXAPARINE [Concomitant]
     Indication: THROMBOSIS PROPHYLAXIS
     Route: 042
  21. GABAPENTIN [Concomitant]
     Indication: NEUROPATHY PERIPHERAL
     Dosage: 1800MG THREE TIMES PER DAY
     Route: 048
  22. TACROLIMUS [Concomitant]
     Indication: IMMUNOSUPPRESSION
     Dosage: 1.5MG THREE TIMES PER DAY
     Route: 048
  23. CETIRIZINE [Concomitant]
     Indication: MULTIPLE ALLERGIES
     Dosage: 10MG PER DAY
     Route: 048

REACTIONS (2)
  - Urinary incontinence [Unknown]
  - Urinary tract infection [Unknown]
